FAERS Safety Report 19959494 (Version 2)
Quarter: 2021Q4

REPORT INFORMATION
  Report Type: Spontaneous
  Country: GB (occurrence: GB)
  Receive Date: 20211015
  Receipt Date: 20211209
  Transmission Date: 20220303
  Serious: Yes (Death, Other)
  Sender: FDA-Public Use
  Company Number: None

PATIENT
  Age: 70 Year
  Sex: Male

DRUGS (8)
  1. AMIODARONE [Suspect]
     Active Substance: AMIODARONE
     Indication: Product used for unknown indication
     Dosage: 200 MILLIGRAM, TID, FOR ONE WEEK
     Route: 048
     Dates: start: 20200207, end: 20200210
  2. AMIODARONE [Suspect]
     Active Substance: AMIODARONE
     Dosage: 200 MILLIGRAM, BID, FOR ONE WEEK
     Route: 048
     Dates: start: 20200207, end: 20200210
  3. AMIODARONE [Suspect]
     Active Substance: AMIODARONE
     Dosage: 200 MILLIGRAM, QD
     Route: 048
     Dates: start: 20200207, end: 20200210
  4. EPLERENONE [Suspect]
     Active Substance: EPLERENONE
     Indication: Ejection fraction decreased
     Dosage: 25 MILLIGRAM, QD
     Route: 048
     Dates: start: 20200208, end: 20200210
  5. APIXABAN [Concomitant]
     Active Substance: APIXABAN
     Indication: Ill-defined disorder
     Dosage: UNK
  6. ATORVASTATIN [Concomitant]
     Active Substance: ATORVASTATIN
     Indication: Ill-defined disorder
     Dosage: UNK
  7. CALCIPOTRIENE [Concomitant]
     Active Substance: CALCIPOTRIENE
     Indication: Ill-defined disorder
     Dosage: UNK
  8. RAMIPRIL [Concomitant]
     Active Substance: RAMIPRIL
     Indication: Ill-defined disorder
     Dosage: UNK

REACTIONS (4)
  - Myocardial infarction [Fatal]
  - Tachyarrhythmia [Not Recovered/Not Resolved]
  - Circulatory collapse [Not Recovered/Not Resolved]
  - Palpitations [Not Recovered/Not Resolved]

NARRATIVE: CASE EVENT DATE: 20200210
